FAERS Safety Report 4964589-6 (Version None)
Quarter: 2006Q2

REPORT INFORMATION
  Report Type: 
  Country: None (occurrence: None)
  Receive Date: 20060406
  Receipt Date: 20060329
  Transmission Date: 20061013
  Serious: Yes (Death)
  Sender: FDA-Public Use
  Company Number: IN-MERCK-0603USA04621

PATIENT
  Age: 65 Year
  Sex: Male

DRUGS (11)
  1. STROMECTOL [Suspect]
     Indication: STRONGYLOIDIASIS
     Route: 048
  2. CYCLOPHOSPHAMIDE [Concomitant]
     Indication: HODGKIN'S DISEASE
     Route: 065
  3. ADRIAMYCIN PFS [Concomitant]
     Indication: HODGKIN'S DISEASE
     Route: 065
  4. VINCRISTINE SULFATE [Concomitant]
     Indication: HODGKIN'S DISEASE
     Route: 065
  5. PREDNISOLONE [Concomitant]
     Indication: HODGKIN'S DISEASE
     Route: 065
  6. GRANULOCYTE COLONY STIMULATING FACTOR (UNSPECIFIED) AND LYMPHOCYTES [Concomitant]
     Indication: FEBRILE NEUTROPENIA
     Route: 065
  7. PIPERACILLIN [Concomitant]
     Indication: FEBRILE NEUTROPENIA
     Route: 042
  8. TAZOBACTAM [Concomitant]
     Indication: FEBRILE NEUTROPENIA
     Route: 042
  9. AMIKACIN [Concomitant]
     Indication: FEBRILE NEUTROPENIA
     Route: 042
  10. TEICOPLANIN [Concomitant]
     Indication: STAPHYLOCOCCAL INFECTION
     Route: 065
  11. ALBENDAZOLE [Concomitant]
     Indication: STRONGYLOIDIASIS
     Route: 065

REACTIONS (4)
  - ACUTE RESPIRATORY DISTRESS SYNDROME [None]
  - DISSEMINATED INTRAVASCULAR COAGULATION [None]
  - SEPSIS [None]
  - SEPTIC SHOCK [None]
